FAERS Safety Report 9521518 (Version 1)
Quarter: 2013Q3

REPORT INFORMATION
  Report Type: Spontaneous
  Country: GB (occurrence: GB)
  Receive Date: 20130913
  Receipt Date: 20130913
  Transmission Date: 20140515
  Serious: Yes (Other)
  Sender: FDA-Public Use
  Company Number: GB-ALEXION PHARMACEUTICALS INC.-A201302205

PATIENT
  Sex: Female

DRUGS (2)
  1. SOLIRIS 300MG [Suspect]
     Indication: PAROXYSMAL NOCTURNAL HAEMOGLOBINURIA
     Dosage: UNK
     Route: 042
  2. CLEXANE [Concomitant]

REACTIONS (6)
  - Transfusion [Unknown]
  - Cholestasis of pregnancy [Unknown]
  - Oligohydramnios [Unknown]
  - Haemoglobin decreased [Unknown]
  - Exposure during pregnancy [Recovered/Resolved]
  - Thrombocytopenia [Unknown]
